FAERS Safety Report 12747866 (Version 1)
Quarter: 2016Q3

REPORT INFORMATION
  Report Type: Spontaneous
  Country: US (occurrence: US)
  Receive Date: 20160915
  Receipt Date: 20160915
  Transmission Date: 20161109
  Serious: No
  Sender: FDA-Public Use
  Company Number: US-JAZZ-2016-US-010032

PATIENT
  Sex: Female

DRUGS (25)
  1. XYREM [Suspect]
     Active Substance: SODIUM OXYBATE
     Indication: NARCOLEPSY
     Dosage: 2.25 G, BID
     Route: 048
     Dates: start: 201412, end: 201501
  2. XYREM [Suspect]
     Active Substance: SODIUM OXYBATE
     Indication: CATAPLEXY
     Dosage: 3 G, BID
     Route: 048
     Dates: start: 201501, end: 201501
  3. MAGNESIUM OXIDE. [Concomitant]
     Active Substance: MAGNESIUM OXIDE
  4. MULTIVITAMINS [Concomitant]
     Active Substance: VITAMINS
  5. PROVIGIL [Concomitant]
     Active Substance: MODAFINIL
  6. VALIUM [Concomitant]
     Active Substance: DIAZEPAM
  7. XYREM [Suspect]
     Active Substance: SODIUM OXYBATE
     Dosage: 3.75 G, BID
     Route: 048
     Dates: start: 201501
  8. BACLOFEN. [Suspect]
     Active Substance: BACLOFEN
     Indication: PRODUCT USED FOR UNKNOWN INDICATION
     Dosage: 10 MG
  9. CHROMIUM PICOLINATE [Concomitant]
     Active Substance: CHROMIUM PICOLINATE
  10. FOLIC ACID. [Concomitant]
     Active Substance: FOLIC ACID
  11. ASPIRIN EC [Concomitant]
     Active Substance: ASPIRIN
  12. ZYFLAMEND [Concomitant]
  13. VITAMIN D3 [Concomitant]
     Active Substance: CHOLECALCIFEROL
  14. PROBIOTIC [Concomitant]
     Active Substance: PROBIOTICS NOS
  15. MAGNESIUM CITRATE. [Concomitant]
     Active Substance: MAGNESIUM CITRATE
  16. PEPPERMINT. [Concomitant]
     Active Substance: PEPPERMINT
  17. PROAIR HFA [Concomitant]
     Active Substance: ALBUTEROL SULFATE
  18. FLONASE [Concomitant]
     Active Substance: FLUTICASONE PROPIONATE
  19. OXYCODONE AND ACETAMINOPHEN [Concomitant]
     Active Substance: ACETAMINOPHEN\OXYCODONE HYDROCHLORIDE
  20. COENZYME Q10 [Concomitant]
     Active Substance: UBIDECARENONE
  21. FISH OIL DR [Concomitant]
  22. L-GLUTAMINE [Concomitant]
  23. METHYLCOBALAMIN. [Concomitant]
     Active Substance: METHYLCOBALAMIN
  24. VITAMIN C [Concomitant]
     Active Substance: ASCORBIC ACID
  25. LIDOCAINE HCL [Concomitant]
     Active Substance: LIDOCAINE HYDROCHLORIDE

REACTIONS (3)
  - Anal fissure [Unknown]
  - Levator syndrome [Unknown]
  - Muscle disorder [Unknown]
